FAERS Safety Report 18638251 (Version 1)
Quarter: 2020Q4

REPORT INFORMATION
  Report Type: Spontaneous
  Country: US (occurrence: US)
  Receive Date: 20201219
  Receipt Date: 20201219
  Transmission Date: 20210114
  Serious: No
  Sender: FDA-Public Use
  Company Number: US-009507513-2012USA007006

PATIENT
  Sex: Female

DRUGS (1)
  1. VYTORIN [Suspect]
     Active Substance: EZETIMIBE\SIMVASTATIN
     Dosage: UNK
     Route: 048

REACTIONS (2)
  - Adverse event [Recovering/Resolving]
  - Tongue discomfort [Recovering/Resolving]
